FAERS Safety Report 18612532 (Version 2)
Quarter: 2021Q1

REPORT INFORMATION
  Report Type: Spontaneous
  Country: IT (occurrence: IT)
  Receive Date: 20201214
  Receipt Date: 20210309
  Transmission Date: 20210419
  Serious: Yes (Other)
  Sender: FDA-Public Use
  Company Number: IT-JNJFOC-20201212603

PATIENT
  Age: 44 Year
  Sex: Female
  Weight: 58 kg

DRUGS (1)
  1. BOSENTAN. [Suspect]
     Active Substance: BOSENTAN
     Indication: SCLERODERMA ASSOCIATED DIGITAL ULCER
     Route: 048
     Dates: start: 20201010, end: 20201125

REACTIONS (2)
  - Skin ulcer [Recovering/Resolving]
  - Therapy non-responder [Recovering/Resolving]

NARRATIVE: CASE EVENT DATE: 20201125
